FAERS Safety Report 7999036-3 (Version None)
Quarter: 2011Q4

REPORT INFORMATION
  Report Type: 
  Country: None (occurrence: None)
  Receive Date: 20111221
  Receipt Date: 20111216
  Transmission Date: 20120403
  Serious: Yes (Death, Other)
  Sender: FDA-Public Use
  Company Number: VE-ROCHE-1023212

PATIENT
  Sex: Female

DRUGS (1)
  1. XOLAIR [Suspect]
     Indication: ASTHMA
     Dates: start: 20090101, end: 20100201

REACTIONS (5)
  - WEIGHT DECREASED [None]
  - PNEUMONIA [None]
  - DEATH [None]
  - CARDIAC ARREST [None]
  - DIZZINESS [None]
